FAERS Safety Report 5084857-X (Version None)
Quarter: 2006Q3

REPORT INFORMATION
  Report Type: 
  Country: None (occurrence: None)
  Receive Date: 20060816
  Receipt Date: 20060810
  Transmission Date: 20061208
  Serious: Yes (Hospitalization)
  Sender: FDA-Public Use
  Company Number: 2006P1000401

PATIENT
  Age: 66 Year
  Sex: Male

DRUGS (3)
  1. NICARDIPINE HYDROCHLOIRDE (NICARDIPINE HYDROCHLORIDE) [Suspect]
     Indication: HYPERTENSION
     Dosage: 10 MG/ML; IV
     Route: 042
  2. TELMISARTAN (TELMISARTAN) [Suspect]
     Indication: DRUG USE FOR UNKNOWN INDICATION
  3. LANSOPRAZOLE [Concomitant]

REACTIONS (4)
  - ANURIA [None]
  - HAEMODIALYSIS [None]
  - INFECTION [None]
  - RENAL IMPAIRMENT [None]
